FAERS Safety Report 13991033 (Version 2)
Quarter: 2017Q4

REPORT INFORMATION
  Report Type: Spontaneous
  Country: JP (occurrence: JP)
  Receive Date: 20170920
  Receipt Date: 20171211
  Transmission Date: 20180321
  Serious: Yes (Hospitalization)
  Sender: FDA-Public Use
  Company Number: JP-009507513-1709JPN001178J

PATIENT
  Age: 65 Year
  Sex: Male

DRUGS (3)
  1. KEYTRUDA [Suspect]
     Active Substance: PEMBROLIZUMAB
     Indication: NON-SMALL CELL LUNG CANCER
     Dosage: 200 MG, Q3W
     Route: 041
     Dates: start: 20170628, end: 20170719
  2. HYDROCORTONE [Concomitant]
     Active Substance: HYDROCORTISONE
     Dosage: 100 MG, UNK
     Route: 051
     Dates: start: 20170903, end: 20170914
  3. KEYTRUDA [Suspect]
     Active Substance: PEMBROLIZUMAB
     Dosage: 200 UNK, UNK
     Route: 041
     Dates: start: 201711

REACTIONS (3)
  - Oedema peripheral [Recovered/Resolved]
  - Eosinophil count increased [Recovered/Resolved]
  - Laceration [Recovering/Resolving]

NARRATIVE: CASE EVENT DATE: 201709
